FAERS Safety Report 12691041 (Version 5)
Quarter: 2017Q3

REPORT INFORMATION
  Report Type: Report from Study
  Country: DE (occurrence: DE)
  Receive Date: 20160826
  Receipt Date: 20170921
  Transmission Date: 20171127
  Serious: Yes (Life-Threatening, Hospitalization, Other)
  Sender: FDA-Public Use
  Company Number: DE-BAYER-2016-049098

PATIENT
  Age: 64 Year
  Sex: Female
  Weight: 144 kg

DRUGS (11)
  1. ADEMPAS [Suspect]
     Active Substance: RIOCIGUAT
     Indication: PULMONARY HYPERTENSION
     Dosage: DAILY DOSE 7.5 MG
     Route: 048
  2. ASPIRIN. [Concomitant]
     Active Substance: ASPIRIN
     Indication: ANTICOAGULANT THERAPY
     Dosage: UNK
  3. ADEMPAS [Suspect]
     Active Substance: RIOCIGUAT
     Indication: PULMONARY HYPERTENSION
     Dosage: UNK
     Route: 048
     Dates: start: 20160228
  4. ADEMPAS [Suspect]
     Active Substance: RIOCIGUAT
     Indication: PULMONARY HYPERTENSION
     Dosage: DAILY DOSE 6 MG
     Route: 048
     Dates: start: 201604
  5. XIPAMID [Concomitant]
     Active Substance: XIPAMIDE
     Indication: URINARY RETENTION
     Dosage: UNK
     Dates: start: 20160504
  6. OXYGEN. [Concomitant]
     Active Substance: OXYGEN
     Dosage: 3 L/MIN
  7. XIPAMID [Concomitant]
     Active Substance: XIPAMIDE
     Indication: URINARY RETENTION
     Dosage: UNK
  8. ADEMPAS [Suspect]
     Active Substance: RIOCIGUAT
     Indication: PULMONARY HYPERTENSION
     Dosage: DAILY DOSE 7.5 MG, OUT OF LABELLED INDICATION
     Route: 048
  9. ADEMPAS [Suspect]
     Active Substance: RIOCIGUAT
     Indication: PULMONARY HYPERTENSION
     Dosage: DAILY DOSE 7.5 MG
     Route: 048
     Dates: start: 2016, end: 201608
  10. ADEMPAS [Suspect]
     Active Substance: RIOCIGUAT
     Indication: PULMONARY HYPERTENSION
     Dosage: DAILY DOSE 3 MG
     Route: 048
  11. ADEMPAS [Suspect]
     Active Substance: RIOCIGUAT
     Indication: PULMONARY HYPERTENSION
     Dosage: UNK

REACTIONS (10)
  - Tachycardia [Recovered/Resolved with Sequelae]
  - Syncope [Recovered/Resolved]
  - Large intestine polyp [Recovered/Resolved]
  - Urinary retention [Recovered/Resolved]
  - Syncope [Recovered/Resolved]
  - Syncope [Recovered/Resolved]
  - Hypokalaemia [Recovered/Resolved]
  - Fatigue [Recovered/Resolved]
  - Atrial fibrillation [Not Recovered/Not Resolved]
  - Hypercalcaemia [Recovering/Resolving]

NARRATIVE: CASE EVENT DATE: 20160304
